FAERS Safety Report 8261653-3 (Version None)
Quarter: 2012Q2

REPORT INFORMATION
  Report Type: 
  Country: None (occurrence: None)
  Receive Date: 20120405
  Receipt Date: 20120405
  Transmission Date: 20120825
  Serious: Yes (Other)
  Sender: FDA-Public Use
  Company Number: None

PATIENT
  Age: 47 Year
  Sex: Female
  Weight: 90.718 kg

DRUGS (2)
  1. MICONAZOLE [Suspect]
     Indication: FUNGAL INFECTION
     Dosage: ONE DOSE
     Route: 067
     Dates: start: 20120327, end: 20120328
  2. MICONAZOL 1 [Concomitant]
     Indication: FUNGAL INFECTION
     Dosage: ONE DOSE
     Route: 067
     Dates: start: 20120329, end: 20120330

REACTIONS (6)
  - APPLICATION SITE SWELLING [None]
  - PRODUCT FORMULATION ISSUE [None]
  - NO THERAPEUTIC RESPONSE [None]
  - APPLICATION SITE PAIN [None]
  - APPLICATION SITE PRURITUS [None]
  - INSOMNIA [None]
